FAERS Safety Report 17357364 (Version 1)
Quarter: 2020Q1

REPORT INFORMATION
  Report Type: Spontaneous
  Country: CO (occurrence: CO)
  Receive Date: 20200131
  Receipt Date: 20200131
  Transmission Date: 20200409
  Serious: Yes (Other)
  Sender: FDA-Public Use
  Company Number: CO-009507513-2001COL009840

PATIENT
  Age: 42 Year
  Sex: Male

DRUGS (2)
  1. ISENTRESS [Suspect]
     Active Substance: RALTEGRAVIR POTASSIUM
     Dosage: 400 MG BID
     Route: 048
     Dates: start: 2019
  2. ISENTRESS [Suspect]
     Active Substance: RALTEGRAVIR POTASSIUM
     Dosage: 800 MG BID
     Route: 048
     Dates: start: 201912

REACTIONS (4)
  - Overdose [Unknown]
  - Viral test positive [Not Recovered/Not Resolved]
  - Viral mutation identified [Unknown]
  - Tuberculosis [Unknown]

NARRATIVE: CASE EVENT DATE: 201912
